FAERS Safety Report 9491043 (Version 2)
Quarter: 2013Q3

REPORT INFORMATION
  Report Type: Spontaneous
  Country: US (occurrence: None)
  Receive Date: 20130826
  Receipt Date: 20130925
  Transmission Date: 20140515
  Serious: Yes (Death, Hospitalization)
  Sender: FDA-Public Use
  Company Number: 2013-1385

PATIENT
  Age: 74 Year
  Sex: Male
  Weight: 76.66 kg

DRUGS (2)
  1. CARFILZOMIB [Suspect]
     Indication: PLASMA CELL MYELOMA
     Dosage: (2 IN 1 WK),INTRAVENOUS
     Route: 042
     Dates: start: 20130604, end: 20130807
  2. DOXIL (DOXYCYLINE HYDROCHLORIDE) (DOXYCYLINE HYDROCHLORIDE) [Concomitant]

REACTIONS (5)
  - Dehydration [None]
  - Systemic inflammatory response syndrome [None]
  - Urosepsis [None]
  - Lung disorder [None]
  - Sepsis [None]
